FAERS Safety Report 9187389 (Version 1)
Quarter: 2013Q1

REPORT INFORMATION
  Report Type: Spontaneous
  Country: GB (occurrence: GB)
  Receive Date: 20130325
  Receipt Date: 20130325
  Transmission Date: 20140127
  Serious: Yes (Hospitalization)
  Sender: FDA-Public Use
  Company Number: GB-ROCHE-1205054

PATIENT
  Age: 72 Year
  Sex: Male

DRUGS (5)
  1. NAPROXEN [Suspect]
     Indication: RHEUMATOID ARTHRITIS
     Route: 048
     Dates: start: 20111114, end: 20121213
  2. PERINDOPRIL [Interacting]
     Indication: RHEUMATOID ARTHRITIS
     Route: 065
  3. SULPHASALAZINE [Interacting]
     Indication: RHEUMATOID ARTHRITIS
     Route: 065
     Dates: start: 20121203
  4. SULPHASALAZINE [Interacting]
     Route: 065
     Dates: end: 20121210
  5. OMEPRAZOLE [Concomitant]

REACTIONS (5)
  - Renal failure acute [Recovered/Resolved]
  - Blood creatinine increased [Recovered/Resolved]
  - Diarrhoea [Unknown]
  - Malaise [Unknown]
  - Drug interaction [Unknown]
